FAERS Safety Report 9183997 (Version 2)
Quarter: 2013Q2

REPORT INFORMATION
  Report Type: Spontaneous
  Country: US (occurrence: US)
  Receive Date: 20121031
  Receipt Date: 20130415
  Transmission Date: 20140414
  Serious: No
  Sender: FDA-Public Use
  Company Number: US-009507513-1210USA006077

PATIENT
  Sex: Male

DRUGS (1)
  1. PROVENTIL [Suspect]
     Dosage: 2 PUFFS DAILY, PRN
     Route: 048

REACTIONS (3)
  - Accidental exposure to product [Unknown]
  - Product quality issue [Unknown]
  - No adverse event [Unknown]
